FAERS Safety Report 7788433-7 (Version None)
Quarter: 2011Q3

REPORT INFORMATION
  Report Type: 
  Country: None (occurrence: None)
  Receive Date: 20110930
  Receipt Date: 20110927
  Transmission Date: 20111222
  Serious: Yes (Other)
  Sender: FDA-Public Use
  Company Number: US-ABBOTT-11P-163-0857944-00

PATIENT
  Age: 36 Year
  Sex: Female

DRUGS (4)
  1. KALETRA [Suspect]
     Indication: ANTIRETROVIRAL THERAPY
     Dosage: 4 TAB/CAPS DAILY (TAKING AT CONCEPTION)
     Route: 048
     Dates: start: 20110115
  2. RETROVIR [Suspect]
     Dosage: NOT TAKING AT CONCEPTION
     Route: 042
     Dates: start: 20110729, end: 20110729
  3. RETROVIR [Suspect]
     Indication: ANTIRETROVIRAL THERAPY
     Dosage: TAKING AT CONCEPTION
     Route: 048
     Dates: start: 20110115
  4. TRUVADA [Suspect]
     Indication: ANTIRETROVIRAL THERAPY
     Dosage: 1 TAB/CAPS DAILY (TAKING AT CONCEPTION)
     Route: 048
     Dates: start: 20110115

REACTIONS (1)
  - PREMATURE RUPTURE OF MEMBRANES [None]
